FAERS Safety Report 7765386-9 (Version None)
Quarter: 2011Q3

REPORT INFORMATION
  Report Type: 
  Country: None (occurrence: None)
  Receive Date: 20110921
  Receipt Date: 20110915
  Transmission Date: 20111222
  Serious: Yes (Hospitalization)
  Sender: FDA-Public Use
  Company Number: CA-MERCK-1109USA01592

PATIENT
  Age: 76 Year
  Sex: Female

DRUGS (1)
  1. TRUSOPT [Suspect]
     Indication: OCULAR HYPERTENSION
     Route: 047

REACTIONS (3)
  - FOREIGN BODY IN EYE [None]
  - ADVERSE EVENT [None]
  - PRODUCT QUALITY ISSUE [None]
